FAERS Safety Report 6420392-1 (Version None)
Quarter: 2009Q4

REPORT INFORMATION
  Report Type: 
  Country: None (occurrence: None)
  Receive Date: 20091029
  Receipt Date: 20091016
  Transmission Date: 20100525
  Serious: Yes (Other)
  Sender: FDA-Public Use
  Company Number: US-ELI_LILLY_AND_COMPANY-US200910004358

PATIENT
  Sex: Female

DRUGS (2)
  1. CYMBALTA [Suspect]
     Indication: PAIN
     Dosage: 60 MG, DAILY (1/D)
  2. VICOPROFEN [Concomitant]
     Indication: PAIN
     Dosage: 1 D/F, UNK
     Dates: end: 20091012

REACTIONS (2)
  - POST PROCEDURAL HAEMORRHAGE [None]
  - SURGERY [None]
